FAERS Safety Report 11693545 (Version 3)
Quarter: 2016Q1

REPORT INFORMATION
  Report Type: Spontaneous
  Country: US (occurrence: US)
  Receive Date: 20151103
  Receipt Date: 20160121
  Transmission Date: 20160525
  Serious: Yes (Other)
  Sender: FDA-Public Use
  Company Number: US-009507513-1510USA008589

PATIENT
  Age: 20 Year
  Sex: Female
  Weight: 174.15 kg

DRUGS (2)
  1. NEXPLANON [Suspect]
     Active Substance: ETONOGESTREL
     Indication: CONTRACEPTION
     Dosage: 68 MG, EVERY 3 YEARS, LEFT ARM
     Route: 059
     Dates: start: 20150619, end: 20151015
  2. NEXPLANON [Suspect]
     Active Substance: ETONOGESTREL
     Dosage: RIGHT ARM, 3 YEAR
     Dates: start: 20151015

REACTIONS (5)
  - Device difficult to use [Recovered/Resolved]
  - Amenorrhoea [Unknown]
  - Rash pruritic [Unknown]
  - Device breakage [Recovered/Resolved]
  - Drug ineffective [Unknown]

NARRATIVE: CASE EVENT DATE: 2015
